FAERS Safety Report 17771722 (Version 10)
Quarter: 2021Q1

REPORT INFORMATION
  Report Type: Report from Study
  Country: US (occurrence: US)
  Receive Date: 20200512
  Receipt Date: 20210224
  Transmission Date: 20210419
  Serious: No
  Sender: FDA-Public Use
  Company Number: NVSC2020US128427

PATIENT
  Sex: Male

DRUGS (3)
  1. COSENTYX [Suspect]
     Active Substance: SECUKINUMAB
     Dosage: 150 MG, QMO
     Route: 058
  2. OTEZLA [Concomitant]
     Active Substance: APREMILAST
     Indication: PRODUCT USED FOR UNKNOWN INDICATION
     Dosage: UNK
     Route: 065
  3. COSENTYX [Suspect]
     Active Substance: SECUKINUMAB
     Indication: PSORIATIC ARTHROPATHY
     Dosage: 150 MG, QMO, (BENEATH THE SKIN, USUALLY VIA INJECTION)
     Route: 058
     Dates: start: 20200320

REACTIONS (11)
  - Arthralgia [Unknown]
  - Product availability issue [Unknown]
  - Pain [Unknown]
  - Product dose omission issue [Unknown]
  - Pain [Recovered/Resolved]
  - Incorrect dose administered [Recovered/Resolved]
  - Skin exfoliation [Recovered/Resolved]
  - Pruritus [Recovered/Resolved]
  - Device malfunction [Recovered/Resolved]
  - Musculoskeletal stiffness [Recovered/Resolved]
  - Injection site haemorrhage [Recovered/Resolved]
